FAERS Safety Report 4463316-9 (Version None)
Quarter: 2004Q3

REPORT INFORMATION
  Report Type: 
  Country: None (occurrence: None)
  Receive Date: 20040930
  Receipt Date: 20040906
  Transmission Date: 20050211
  Serious: Yes (Hospitalization, Disabling, Other)
  Sender: FDA-Public Use
  Company Number: JP-BRISTOL-MYERS SQUIBB COMPANY-12699567

PATIENT
  Age: 71 Year
  Sex: Female

DRUGS (3)
  1. SINEMET [Suspect]
     Indication: PARKINSON'S DISEASE
     Dosage: DOSAGE: INCREASED TO 50MG 5 TIMES DAILY FROM 07-JAN-2004 TO 09-JAN-2004
     Route: 048
  2. PERGOLIDE MESYLATE [Concomitant]
  3. CABERGOLINE [Concomitant]

REACTIONS (6)
  - DEAFNESS [None]
  - DYSKINESIA [None]
  - NAUSEA [None]
  - PANIC DISORDER [None]
  - POSTURE ABNORMAL [None]
  - WALKING DISABILITY [None]
